FAERS Safety Report 5660706-3 (Version None)
Quarter: 2008Q1

REPORT INFORMATION
  Report Type: 
  Country: None (occurrence: None)
  Receive Date: 20080306
  Receipt Date: 20080303
  Transmission Date: 20080703
  Serious: Yes (Disabling)
  Sender: FDA-Public Use
  Company Number: 2008-01639

PATIENT
  Age: 53 Year
  Sex: Female

DRUGS (8)
  1. TRELSTAR DEPOT [Suspect]
     Indication: UTERINE LEIOMYOMA
     Dosage: 3 MG, INTRAMUSCULAR
     Route: 030
     Dates: start: 20070101, end: 20070701
  2. SALBUTAMOL (SALBUTAMOL) [Concomitant]
  3. DIAZEPAM [Concomitant]
  4. IPRATROPIUM BROMIDE [Concomitant]
  5. MEFENAMIC ACID [Concomitant]
  6. MORPHINE [Concomitant]
  7. SALMETEROL       (SALMETEROL) [Concomitant]
  8. SANOMIGRAN         (PIZOTIFEN MALEATE) [Concomitant]

REACTIONS (3)
  - ATRIAL FIBRILLATION [None]
  - CARDIAC FAILURE CHRONIC [None]
  - HYPERTHYROIDISM [None]
